FAERS Safety Report 8504859 (Version 2)
Quarter: 2013Q4

REPORT INFORMATION
  Report Type: Spontaneous
  Country: DK (occurrence: FR)
  Receive Date: 20120411
  Receipt Date: 20131204
  Transmission Date: 20140711
  Serious: Yes (Hospitalization)
  Sender: FDA-Public Use
  Company Number: FR-FRI-1000029721

PATIENT
  Age: 52 Year
  Sex: Male

DRUGS (6)
  1. ESCITALOPRAM [Suspect]
     Indication: DEPRESSION
     Dosage: 20 MG
     Route: 048
     Dates: start: 201110, end: 201201
  2. ZYPREXA [Suspect]
     Indication: DEPRESSION
     Dosage: 5 MG
     Route: 048
     Dates: start: 20111123, end: 20120105
  3. RASILEZ HCT [Suspect]
     Indication: HYPERTENSION
     Dosage: 150 MG/12.5 MG
     Route: 048
     Dates: end: 20120121
  4. ANAFRANIL [Suspect]
     Indication: DEPRESSION
     Dosage: 37.5 MG
     Route: 048
     Dates: start: 201201, end: 20120121
  5. ALPRAZOLAM [Suspect]
     Indication: MENTAL DISORDER
     Dosage: 0.75 MG
     Route: 048
     Dates: end: 20120121
  6. PRAZEPAM [Concomitant]

REACTIONS (4)
  - Hepatic enzyme increased [Recovering/Resolving]
  - Jaundice [Recovered/Resolved]
  - Condition aggravated [Recovered/Resolved]
  - Hepatic failure [Recovering/Resolving]
